FAERS Safety Report 6136365-2 (Version None)
Quarter: 2009Q1

REPORT INFORMATION
  Report Type: 
  Country: None (occurrence: None)
  Receive Date: 20090330
  Receipt Date: 20090316
  Transmission Date: 20090719
  Serious: Yes (Other)
  Sender: FDA-Public Use
  Company Number: US-ROCHE-622211

PATIENT
  Sex: Female
  Weight: 79.8 kg

DRUGS (9)
  1. CAPECITABINE [Suspect]
     Indication: BONE CANCER METASTATIC
     Dosage: 4 TABLETS AM, 3 TABLETS PM, FOR 1-14 DAYS OF EACH 21 DAY CYCLE
     Route: 048
     Dates: start: 20080918, end: 20090218
  2. BENADRYL [Concomitant]
     Dosage: DOSE: 2 EVERY NIGHT
     Dates: start: 20080717
  3. BUPROPION HCL [Concomitant]
     Route: 048
     Dates: start: 20080918
  4. CLONAZEPAM [Concomitant]
     Dosage: 1 EVERY DAY AT BEDTIME AS NECESSARY
     Route: 048
     Dates: start: 20081008
  5. DEPAKOTE [Concomitant]
     Dosage: AT BEDTIME
     Dates: start: 20080717
  6. OMEPRAZOLE [Concomitant]
     Dosage: DAILY AS NECESSARY, DELAYED RELEASE TABLET
     Route: 048
     Dates: start: 20081120
  7. TRIMETHOPRIM [Concomitant]
     Dosage: DOSE: 2 EVERY NIGHT
     Dates: start: 20080717
  8. TYLENOL [Concomitant]
     Dosage: DOSE: AS NECESSARY
     Dates: start: 20090218
  9. VITAMIN D3 [Concomitant]
     Dosage: 1 EVERY DAY, STRENGTH (500 MG- 400 UNIT)
     Dates: start: 20090128

REACTIONS (2)
  - DISEASE PROGRESSION [None]
  - SKIN LESION [None]
